FAERS Safety Report 8382629-1 (Version None)
Quarter: 2012Q2

REPORT INFORMATION
  Report Type: 
  Country: None (occurrence: None)
  Receive Date: 20120503
  Receipt Date: 20120423
  Transmission Date: 20120825
  Serious: Yes (Other)
  Sender: FDA-Public Use
  Company Number: OMX-2012-00001

PATIENT
  Age: 51 Year
  Sex: Male

DRUGS (2)
  1. SURGIFLO [Concomitant]
  2. EVITHROM [Suspect]
     Indication: PRODUCT USED FOR UNKNOWN INDICATION
     Dates: start: 20100217, end: 20100217

REACTIONS (2)
  - HEPATITIS C [None]
  - FATIGUE [None]
